FAERS Safety Report 7287789-1 (Version None)
Quarter: 2011Q1

REPORT INFORMATION
  Report Type: 
  Country: None (occurrence: None)
  Receive Date: 20110211
  Receipt Date: 20110201
  Transmission Date: 20110831
  Serious: Yes (Other)
  Sender: FDA-Public Use
  Company Number: US-PFIZER INC-US-WYE-H14585710

PATIENT
  Sex: Female
  Weight: 135.6 kg

DRUGS (7)
  1. ABILIFY [Concomitant]
     Route: 065
  2. NEURONTIN [Concomitant]
     Route: 065
  3. PRISTIQ [Suspect]
     Indication: DEPRESSION
     Dosage: 50.0 MG, 1X/DAY
     Route: 065
     Dates: start: 20090101
  4. PRILOSEC [Concomitant]
     Route: 065
  5. MORPHINE [Concomitant]
     Route: 065
  6. ROZEREM [Concomitant]
  7. TYLOX /OLD FORM/ [Concomitant]
     Route: 065

REACTIONS (4)
  - CONDITION AGGRAVATED [None]
  - DEPRESSION [None]
  - DRUG EFFECT DECREASED [None]
  - MULTIPLE SCLEROSIS [None]
